FAERS Safety Report 5834651-4 (Version None)
Quarter: 2008Q3

REPORT INFORMATION
  Report Type: 
  Country: None (occurrence: None)
  Receive Date: 20080801
  Receipt Date: 20080717
  Transmission Date: 20090109
  Serious: Yes (Life-Threatening, Hospitalization)
  Sender: FDA-Public Use
  Company Number: 1419181-2008-0004

PATIENT
  Age: 55 Year
  Sex: Male
  Weight: 70.7 kg

DRUGS (9)
  1. CHLORHEXIDINE GLUCONATE [Suspect]
     Indication: ANTIBIOTIC PROPHYLAXIS
     Dosage: 2500-3000 MG DAILY, TOPICAL
     Route: 061
     Dates: start: 20080522, end: 20080529
  2. CHLORHEXIDINE GLUCONATE [Suspect]
     Indication: ANTIBIOTIC PROPHYLAXIS
     Dosage: 2500-3000 MG DAILY, TOPICAL
     Route: 061
     Dates: start: 20080613, end: 20080618
  3. CHLORHEXIDINE GLUCONATE [Suspect]
  4. CHLORHEXIDINE GLUCONATE [Suspect]
  5. MULTIPLE PERIPHERAL IV LINES [Concomitant]
  6. TRIPLE LUMEN CENTRAL VENOUS CATHETER [Concomitant]
  7. MIDLINE IV CATHETER [Concomitant]
  8. PERIPHERALLY INSERTED CENTRAL CATHETER (PICC) [Concomitant]
  9. CHEST TUBES [Concomitant]

REACTIONS (7)
  - BLOOD CULTURE POSITIVE [None]
  - BLOOD DISORDER [None]
  - BLOOD PRESSURE DIASTOLIC DECREASED [None]
  - BURKHOLDERIA CEPACIA INFECTION [None]
  - GENERAL PHYSICAL CONDITION ABNORMAL [None]
  - INFECTION [None]
  - PHARMACEUTICAL PRODUCT COMPLAINT [None]
